FAERS Safety Report 21195778 (Version 1)
Quarter: 2022Q3

REPORT INFORMATION
  Report Type: Spontaneous
  Country: None (occurrence: US)
  Receive Date: 20220810
  Receipt Date: 20220810
  Transmission Date: 20221027
  Serious: Yes (Other)
  Sender: FDA-Public Use
  Company Number: US-Imprimis NJOF-2131685

PATIENT

DRUGS (1)
  1. MOXIFLOXACIN\PREDNISOLONE ACETATE [Suspect]
     Active Substance: MOXIFLOXACIN\PREDNISOLONE ACETATE
     Route: 047

REACTIONS (1)
  - Corneal disorder [Unknown]
